FAERS Safety Report 7547611-2 (Version None)
Quarter: 2011Q2

REPORT INFORMATION
  Report Type: 
  Country: None (occurrence: None)
  Receive Date: 20110614
  Receipt Date: 20110413
  Transmission Date: 20111010
  Serious: No
  Sender: FDA-Public Use
  Company Number: US-ALLERGAN-1105211US

PATIENT
  Age: 15 Year
  Sex: Female

DRUGS (1)
  1. ACZONE [Suspect]
     Indication: ACNE
     Dosage: 1 APPLICATION QAM
     Route: 061
     Dates: start: 20110314, end: 20110316

REACTIONS (2)
  - ERYTHEMA [None]
  - SKIN EXFOLIATION [None]
